FAERS Safety Report 5731825-8 (Version None)
Quarter: 2008Q2

REPORT INFORMATION
  Report Type: 
  Country: None (occurrence: None)
  Receive Date: 20080508
  Receipt Date: 20080505
  Transmission Date: 20081010
  Serious: Yes (Other)
  Sender: FDA-Public Use
  Company Number: A0726173A

PATIENT
  Age: 44 Year
  Sex: Female

DRUGS (1)
  1. LOVAZA [Suspect]
     Dosage: 4G UNKNOWN
     Route: 048
     Dates: start: 20071201, end: 20080422

REACTIONS (3)
  - ALANINE AMINOTRANSFERASE INCREASED [None]
  - ASPARTATE AMINOTRANSFERASE INCREASED [None]
  - BLOOD TRIGLYCERIDES INCREASED [None]
